FAERS Safety Report 4662191-7 (Version None)
Quarter: 2005Q2

REPORT INFORMATION
  Report Type: 
  Country: None (occurrence: None)
  Receive Date: 20050512
  Receipt Date: 20050504
  Transmission Date: 20051028
  Serious: Yes (Other)
  Sender: FDA-Public Use
  Company Number: 200511157BCC

PATIENT
  Age: 89 Year
  Sex: Male
  Weight: 71.6683 kg

DRUGS (6)
  1. MILK OF MAGNESIA TAB [Suspect]
     Indication: CONSTIPATION
     Dosage: SEE IMAGE
     Route: 048
     Dates: start: 20040901
  2. MILK OF MAGNESIA TAB [Suspect]
     Indication: CONSTIPATION
     Dosage: SEE IMAGE
     Route: 048
     Dates: start: 20050101
  3. CARDIZEM [Concomitant]
  4. HYZAAR [Concomitant]
  5. ST. JOSEPH'S ASPIRIN [Concomitant]
  6. SYNTHROID [Concomitant]

REACTIONS (5)
  - BLOOD POTASSIUM DECREASED [None]
  - BLOOD SODIUM DECREASED [None]
  - DISORIENTATION [None]
  - FAECES HARD [None]
  - HAEMATOCHEZIA [None]
